FAERS Safety Report 7769319-0 (Version None)
Quarter: 2011Q3

REPORT INFORMATION
  Report Type: 
  Country: None (occurrence: None)
  Receive Date: 20110922
  Receipt Date: 20110301
  Transmission Date: 20111222
  Serious: No
  Sender: FDA-Public Use
  Company Number: US-ASTRAZENECA-2011SE11260

PATIENT
  Age: 48 Year
  Sex: Female

DRUGS (11)
  1. SEROQUEL [Suspect]
     Route: 048
     Dates: start: 20110214
  2. ASPIRIN [Concomitant]
  3. SIMVASTATIN [Concomitant]
  4. METOPROLOL TARTRATE [Concomitant]
  5. SEROQUEL [Suspect]
     Route: 048
     Dates: start: 20110214
  6. DIPYRIDAMOLE [Concomitant]
     Indication: ANTICOAGULANT THERAPY
  7. AMLODIPINE [Concomitant]
  8. SEROQUEL [Suspect]
     Indication: FEAR
     Route: 048
     Dates: start: 20110125, end: 20110213
  9. LEXAPRO [Concomitant]
  10. SEROQUEL [Suspect]
     Indication: ANXIETY
     Route: 048
     Dates: start: 20110125, end: 20110213
  11. DEPRESSION MEDS [Concomitant]
     Dates: start: 19960101

REACTIONS (3)
  - DRUG DOSE OMISSION [None]
  - SOMNOLENCE [None]
  - FATIGUE [None]
